FAERS Safety Report 4286036-2 (Version None)
Quarter: 2004Q1

REPORT INFORMATION
  Report Type: 
  Country: None (occurrence: None)
  Receive Date: 20040205
  Receipt Date: 20031030
  Transmission Date: 20041129
  Serious: Yes (Other)
  Sender: FDA-Public Use
  Company Number: PHBS2003JP12244

PATIENT
  Age: 58 Year
  Sex: Female

DRUGS (2)
  1. DIOVAN [Suspect]
     Indication: HYPERTENSION
     Dosage: 80 MG, QD
     Route: 048
     Dates: start: 20030324, end: 20031027
  2. FERROMIA [Suspect]
     Indication: NEPHROGENIC ANAEMIA
     Dosage: 400 MG/DAY
     Route: 048
     Dates: start: 19980121

REACTIONS (1)
  - BLOOD GLUCOSE DECREASED [None]
